FAERS Safety Report 8914259 (Version 1)
Quarter: 2012Q4

REPORT INFORMATION
  Report Type: 
  Country: BR (occurrence: BR)
  Receive Date: 20121118
  Receipt Date: 20121118
  Transmission Date: 20130627
  Serious: Yes (Hospitalization)
  Sender: FDA-Public Use
  Company Number: BR-AMGEN-BRASP2012073479

PATIENT
  Age: 48 Year
  Sex: Female
  Weight: 62 kg

DRUGS (7)
  1. ENBREL [Suspect]
     Indication: ANKYLOSING SPONDYLITIS
     Dosage: 50 mg, once weekly
     Route: 058
     Dates: start: 201208, end: 2012
  2. LYRICA [Concomitant]
     Indication: PAIN
     Dosage: UNK
     Dates: start: 201206
  3. DONAREN [Concomitant]
     Indication: SLEEP DISORDER
     Dosage: UNK
  4. DONAREN [Concomitant]
     Indication: PAIN
  5. IBUPROFEN [Concomitant]
     Indication: PAIN
     Dosage: UNK
  6. CAPTOPRIL [Concomitant]
     Indication: BLOOD PRESSURE INCREASED
     Dosage: UNK
  7. CAPTOPRIL [Concomitant]
     Indication: DIURETIC THERAPY

REACTIONS (6)
  - Decreased immune responsiveness [Recovering/Resolving]
  - Gait disturbance [Recovering/Resolving]
  - Weight decreased [Not Recovered/Not Resolved]
  - Diarrhoea [Recovering/Resolving]
  - Asthenia [Recovering/Resolving]
  - Feeling abnormal [Recovering/Resolving]
